FAERS Safety Report 20310746 (Version 1)
Quarter: 2022Q1

REPORT INFORMATION
  Report Type: Spontaneous
  Country: US (occurrence: None)
  Receive Date: 20220107
  Receipt Date: 20220107
  Transmission Date: 20220423
  Serious: No
  Sender: FDA-Public Use
  Company Number: None

PATIENT
  Age: 70 Year
  Sex: Female
  Weight: 94.5 kg

DRUGS (5)
  1. VEKLURY [Suspect]
     Active Substance: REMDESIVIR
     Indication: COVID-19
     Dosage: OTHER QUANTITY : 1 INJECTION(S);?FREQUENCY : DAILY;?
     Route: 042
     Dates: start: 20210930, end: 20211003
  2. INSULIN NOS [Concomitant]
     Active Substance: INSULIN NOS
  3. Truilicity [Concomitant]
  4. bio-identical hormones [Concomitant]
  5. UNSPECIFIED INGREDIENT [Concomitant]
     Active Substance: UNSPECIFIED INGREDIENT

REACTIONS (2)
  - Alopecia [None]
  - Hepatic enzyme increased [None]

NARRATIVE: CASE EVENT DATE: 20211030
